FAERS Safety Report 4836574-6 (Version None)
Quarter: 2005Q4

REPORT INFORMATION
  Report Type: 
  Country: None (occurrence: None)
  Receive Date: 20051121
  Receipt Date: 20051107
  Transmission Date: 20060501
  Serious: Yes (Disabling)
  Sender: FDA-Public Use
  Company Number: 2005153090

PATIENT
  Sex: Female
  Weight: 48.9885 kg

DRUGS (4)
  1. CELEBREX [Suspect]
     Indication: ARTHRITIS
     Dosage: 200 MG (200 MG, 1 IN 1D)
  2. BACLOFEN [Concomitant]
  3. FOSAMAX [Concomitant]
  4. DANTRIUM [Concomitant]

REACTIONS (2)
  - ARTHROPATHY [None]
  - WEIGHT INCREASED [None]
